FAERS Safety Report 10538924 (Version 1)
Quarter: 2014Q4

REPORT INFORMATION
  Report Type: Spontaneous
  Country: BR (occurrence: BR)
  Receive Date: 20141023
  Receipt Date: 20141023
  Transmission Date: 20150529
  Serious: Yes (Hospitalization, Other)
  Sender: FDA-Public Use
  Company Number: BR-009507513-1410BRA011112

PATIENT
  Sex: Female
  Weight: 66 kg

DRUGS (7)
  1. FORASEQ [Concomitant]
     Active Substance: BUDESONIDE\FORMOTEROL FUMARATE
     Indication: ASTHMA
     Dosage: 1 APPLICATION ORALLY, TWICE DAILY
     Route: 048
     Dates: start: 1984
  2. SINGULAIR [Suspect]
     Active Substance: MONTELUKAST SODIUM
     Indication: ASTHMA
     Dosage: 10 MG, QD
     Route: 048
     Dates: start: 1994
  3. OMEPRAZOLE. [Concomitant]
     Active Substance: OMEPRAZOLE
     Indication: PROPHYLAXIS
     Dosage: 20 MG, QD
     Route: 048
     Dates: start: 2004
  4. SINGULAIR [Suspect]
     Active Substance: MONTELUKAST SODIUM
     Indication: SINUSITIS
  5. SINGULAIR [Suspect]
     Active Substance: MONTELUKAST SODIUM
     Indication: DYSPNOEA
     Dosage: 1 DF, QD
     Route: 048
     Dates: start: 2014
  6. FORASEQ [Concomitant]
     Active Substance: BUDESONIDE\FORMOTEROL FUMARATE
     Indication: BRONCHITIS
  7. FORASEQ [Concomitant]
     Active Substance: BUDESONIDE\FORMOTEROL FUMARATE
     Indication: EMPHYSEMA

REACTIONS (16)
  - Ovarian cancer [Not Recovered/Not Resolved]
  - Coma [Recovered/Resolved]
  - Intestinal operation [Unknown]
  - Off label use [Unknown]
  - Uterine cancer [Not Recovered/Not Resolved]
  - Hypertension [Not Recovered/Not Resolved]
  - Drug administered to patient of inappropriate age [Unknown]
  - Breast cancer [Not Recovered/Not Resolved]
  - Chemotherapy [Unknown]
  - Blood urine present [Unknown]
  - Vomiting [Unknown]
  - Nausea [Unknown]
  - Vitamin D deficiency [Not Recovered/Not Resolved]
  - Embolism [Not Recovered/Not Resolved]
  - Dyspnoea [Not Recovered/Not Resolved]
  - Ovarian operation [Unknown]

NARRATIVE: CASE EVENT DATE: 1999
